FAERS Safety Report 8087742 (Version 2)
Quarter: 2013Q2

REPORT INFORMATION
  Report Type: Spontaneous
  Country: US (occurrence: US)
  Receive Date: 20110812
  Receipt Date: 20130513
  Transmission Date: 20140414
  Serious: Yes (Hospitalization, Other)
  Sender: FDA-Public Use
  Company Number: US-GENZYME-CLOF-1001733

PATIENT
  Age: 5 Year
  Sex: Female

DRUGS (6)
  1. CLOLAR [Suspect]
     Indication: LANGERHANS^ CELL HISTIOCYTOSIS
     Dosage: 25 MG/M2, QD (CYCLE 1)
     Route: 065
  2. CLOLAR [Suspect]
     Dosage: 25 MG/M2, QD (CYCLE 2)
     Route: 065
  3. CLOLAR [Suspect]
     Dosage: 25 MG/M2, QD (CYCLE 3)
     Route: 065
  4. CLOLAR [Suspect]
     Dosage: 25 MG/M2, QD (CYCLE 4)
     Route: 065
  5. CLOLAR [Suspect]
     Dosage: 25 MG/M2, QD (CYCLE 5)
     Route: 065
  6. CLOLAR [Suspect]
     Dosage: 25 MG/M2, QD (CYCLE 6)
     Route: 065

REACTIONS (2)
  - Febrile neutropenia [Unknown]
  - Bone marrow failure [Unknown]
